FAERS Safety Report 8246756-1 (Version None)
Quarter: 2012Q1

REPORT INFORMATION
  Report Type: 
  Country: None (occurrence: None)
  Receive Date: 20120330
  Receipt Date: 20120322
  Transmission Date: 20120608
  Serious: Yes (Other)
  Sender: FDA-Public Use
  Company Number: US-PFIZER INC-2011149747

PATIENT
  Sex: Female
  Weight: 52.608 kg

DRUGS (12)
  1. OXYBUTYNIN [Suspect]
     Indication: HYPERTONIC BLADDER
     Dosage: UNK
  2. FLUOXETINE [Concomitant]
     Dosage: UNK
  3. DETROL LA [Suspect]
     Indication: HYPERTONIC BLADDER
     Dosage: UNK
     Dates: start: 20100701
  4. NASAL SALINE [Concomitant]
     Dosage: UNK
  5. PROZAC [Concomitant]
     Indication: DEPRESSION
     Dosage: UNK
  6. AMBIEN [Concomitant]
     Dosage: 10 MG, UNK
  7. FIORICET [Concomitant]
     Indication: PAIN
     Dosage: UNK
  8. VESICARE [Suspect]
     Indication: HYPERTONIC BLADDER
     Dosage: UNK
  9. SYNTHROID [Concomitant]
     Indication: THYROID DISORDER
     Dosage: 125 UG, DAILY
  10. NEXIUM [Concomitant]
     Indication: GASTROENTERITIS
     Dosage: 40 MG, DAILY
  11. DETROL LA [Suspect]
     Dosage: 4 MG, 2X/DAY
  12. SYNTHROID [Concomitant]
     Indication: HORMONE THERAPY

REACTIONS (16)
  - DIZZINESS [None]
  - CONSTIPATION [None]
  - CYSTITIS [None]
  - CORNEAL ABRASION [None]
  - BLADDER DISORDER [None]
  - PAIN [None]
  - SURGERY [None]
  - BLADDER PAIN [None]
  - HEART RATE INCREASED [None]
  - BACK DISORDER [None]
  - HEADACHE [None]
  - DRY EYE [None]
  - SINUSITIS [None]
  - CONCUSSION [None]
  - FALL [None]
  - DYSPEPSIA [None]
